FAERS Safety Report 21025321 (Version 1)
Quarter: 2022Q2

REPORT INFORMATION
  Report Type: Spontaneous
  Country: US (occurrence: US)
  Receive Date: 20220630
  Receipt Date: 20220630
  Transmission Date: 20220720
  Serious: No
  Sender: FDA-Public Use
  Company Number: US-GLAXOSMITHKLINE-US2022097825

PATIENT
  Age: 63 Year
  Sex: Female

DRUGS (1)
  1. ZEJULA [Suspect]
     Active Substance: NIRAPARIB
     Indication: Ovarian cancer
     Dosage: 200 MG, QD
     Route: 048
     Dates: start: 20220608

REACTIONS (8)
  - Illness [Unknown]
  - Vomiting [Unknown]
  - Gastric disorder [Unknown]
  - Fatigue [Unknown]
  - Musculoskeletal chest pain [Unknown]
  - Pain [Unknown]
  - Blood pressure increased [Unknown]
  - Body temperature increased [Unknown]

NARRATIVE: CASE EVENT DATE: 20220601
